FAERS Safety Report 5144155-2 (Version None)
Quarter: 2006Q4

REPORT INFORMATION
  Report Type: 
  Country: None (occurrence: None)
  Receive Date: 20061030
  Receipt Date: 20061018
  Transmission Date: 20070319
  Serious: Yes (Other)
  Sender: FDA-Public Use
  Company Number: FR200607004808

PATIENT
  Age: 74 Year
  Sex: Female

DRUGS (8)
  1. FORTEO [Suspect]
     Indication: OSTEOPOROSIS
     Dosage: 20 UG, DAILY (1/D), SUBCUTANEOUS
     Route: 058
     Dates: start: 20060222
  2. FORTEO [Concomitant]
  3. LIPANTHYL (FENOFIBRATE) [Concomitant]
  4. TAREG (VALSARTAN) [Concomitant]
  5. DI-ANTALVIC (DEXTROPROPOXYPHENE HYDROCHLORIDE, PARACETAMOL) CAPSULE [Concomitant]
  6. CALPEROS (CALCIUM CARBONATE) [Concomitant]
  7. DEROXAT (PAROXETINE HYDROCHLORIDE) TABLET [Concomitant]
  8. BROMAZEPAM (BROMAZEPAM) [Concomitant]

REACTIONS (10)
  - ARTERIAL DISORDER [None]
  - BALANCE DISORDER [None]
  - DIZZINESS [None]
  - FALL [None]
  - LACERATION [None]
  - LOSS OF CONSCIOUSNESS [None]
  - MALAISE [None]
  - NAUSEA [None]
  - OEDEMA PERIPHERAL [None]
  - SPINAL OSTEOARTHRITIS [None]
